FAERS Safety Report 6081777-9 (Version None)
Quarter: 2009Q1

REPORT INFORMATION
  Report Type: 
  Country: None (occurrence: None)
  Receive Date: 20090218
  Receipt Date: 20090205
  Transmission Date: 20090719
  Serious: Yes (Life-Threatening, Other)
  Sender: FDA-Public Use
  Company Number: US-BAYER-200911922NA

PATIENT
  Age: 48 Year
  Sex: Female

DRUGS (12)
  1. AVELOX [Suspect]
     Indication: LOBAR PNEUMONIA
     Dosage: TOTAL DAILY DOSE: 400 MG  UNIT DOSE: 400 MG
     Dates: start: 20090116, end: 20090123
  2. TYLENOL (CAPLET) [Suspect]
     Dosage: UNIT DOSE: 500 MG
     Route: 048
  3. HYDROCHLOROTHIAZIDE [Concomitant]
     Dosage: AS USED: 25 MG  UNIT DOSE: 25 MG
     Dates: start: 20090125
  4. SIMVASTATIN [Concomitant]
     Dosage: TOTAL DAILY DOSE: 20 MG  UNIT DOSE: 20 MG
     Dates: start: 20080122
  5. LEVOTHYROXINE SODIUM [Concomitant]
     Dosage: AS USED: 100 MG  UNIT DOSE: 100 MG
  6. SERTRALINE [Concomitant]
     Dosage: AS USED: 150 MG  UNIT DOSE: 100 MG
     Dates: start: 20080122
  7. PREVACID [Concomitant]
     Dosage: AS USED: 30 MG  UNIT DOSE: 30 MG
     Dates: start: 20080122
  8. ALLEGRA [Concomitant]
     Dosage: TOTAL DAILY DOSE: 180 MG  UNIT DOSE: 180 MG
  9. NASONEX [Concomitant]
     Dosage: TOTAL DAILY DOSE: 50 ?G  UNIT DOSE: 50 ?G
  10. ALBUTEROL [Concomitant]
  11. ALPRAZOLAM [Concomitant]
  12. RANITIDINE [Concomitant]
     Dosage: TOTAL DAILY DOSE: 75 MG  UNIT DOSE: 75 MG

REACTIONS (16)
  - ABDOMINAL PAIN [None]
  - ANOREXIA [None]
  - ASTHENIA [None]
  - CHROMATURIA [None]
  - COAGULOPATHY [None]
  - FATIGUE [None]
  - HEPATIC ENCEPHALOPATHY [None]
  - HEPATIC FAILURE [None]
  - JAUNDICE [None]
  - LIVER FUNCTION TEST ABNORMAL [None]
  - MALAISE [None]
  - NAUSEA [None]
  - OLIGURIA [None]
  - PAIN [None]
  - RENAL IMPAIRMENT [None]
  - SOMNOLENCE [None]
